FAERS Safety Report 25877106 (Version 1)
Quarter: 2025Q4

REPORT INFORMATION
  Report Type: Other
  Country: EU (occurrence: EU)
  Receive Date: 20251003
  Receipt Date: 20251003
  Transmission Date: 20260117
  Serious: Yes (Other)
  Sender: ASPEN
  Company Number: EU-ATNAHS-2025-PMNV-BE000908

PATIENT

DRUGS (2)
  1. DEXAMETHASONE [Suspect]
     Active Substance: DEXAMETHASONE
     Indication: Intervertebral disc protrusion
     Dosage: 4 MILLIGRAM PER MILLILITRE
     Route: 065
  2. ANAPROX [Suspect]
     Active Substance: NAPROXEN SODIUM
     Indication: Intervertebral disc protrusion
     Dosage: UNK
     Route: 065

REACTIONS (2)
  - Off label use [Unknown]
  - Insulin autoimmune syndrome [Recovering/Resolving]
